FAERS Safety Report 10192032 (Version 1)
Quarter: 2014Q2

REPORT INFORMATION
  Report Type: Spontaneous
  Country: GB (occurrence: GB)
  Receive Date: 20140523
  Receipt Date: 20140523
  Transmission Date: 20141212
  Serious: Yes (Other)
  Sender: FDA-Public Use
  Company Number: GB-PFIZER INC-2014137413

PATIENT
  Age: 66 Year
  Sex: Male
  Weight: 71.66 kg

DRUGS (2)
  1. ATORVASTATIN CALCIUM [Suspect]
     Indication: BLOOD CHOLESTEROL INCREASED
     Dosage: 40 MG, 1X/DAY
     Route: 048
  2. AMLODIPINE [Concomitant]
     Dosage: 5 MG, 1X/DAY

REACTIONS (11)
  - Musculoskeletal pain [Recovered/Resolved]
  - Muscle spasms [Recovered/Resolved]
  - Sleep disorder [Recovered/Resolved]
  - Nightmare [Recovered/Resolved]
  - Feeling abnormal [Recovered/Resolved]
  - Abnormal dreams [Recovered/Resolved]
  - Tachyphrenia [Recovered/Resolved]
  - Ligament disorder [Unknown]
  - Tendon disorder [Unknown]
  - Muscle disorder [Unknown]
  - Activities of daily living impaired [Recovered/Resolved]
